FAERS Safety Report 6028800-5 (Version None)
Quarter: 2009Q1

REPORT INFORMATION
  Report Type: 
  Country: None (occurrence: None)
  Receive Date: 20090106
  Receipt Date: 20081222
  Transmission Date: 20090719
  Serious: Yes (Other)
  Sender: FDA-Public Use
  Company Number: US-GENENTECH-274519

PATIENT

DRUGS (6)
  1. AVASTIN [Suspect]
     Indication: NON-SMALL CELL LUNG CANCER
     Dosage: 15 MG/KG, Q21D
     Route: 065
  2. OXALIPLATIN [Suspect]
     Indication: NON-SMALL CELL LUNG CANCER
     Dosage: 120 MG/M2, Q21D
     Route: 065
  3. PEMETREXED [Suspect]
     Indication: NON-SMALL CELL LUNG CANCER
     Dosage: 500 MG/M2, Q21D
     Route: 065
  4. VITAMIN B-12 [Concomitant]
     Indication: DRUG USE FOR UNKNOWN INDICATION
     Dosage: 1000 A?G, UNK
  5. FOLIC ACID [Concomitant]
     Indication: DRUG USE FOR UNKNOWN INDICATION
     Dosage: 1 MG, QD
  6. DEXAMETHASONE [Concomitant]
     Indication: PREMEDICATION
     Dosage: 4 MG, UNK

REACTIONS (1)
  - ANAEMIA [None]
